FAERS Safety Report 5163379-1 (Version None)
Quarter: 2006Q4

REPORT INFORMATION
  Report Type: 
  Country: None (occurrence: None)
  Receive Date: 20061124
  Receipt Date: 20061109
  Transmission Date: 20070319
  Serious: Yes (Hospitalization, Other)
  Sender: FDA-Public Use
  Company Number: 2006139978

PATIENT
  Age: 79 Year
  Sex: Male
  Weight: 68.0396 kg

DRUGS (5)
  1. TIKOSYN [Suspect]
     Indication: ATRIAL FIBRILLATION
     Dosage: 1 MG (0.5 MG, 2 IN 1 D)
  2. WARFARIN SODIUM [Concomitant]
  3. GEMFIBROZIL [Concomitant]
  4. OXYBUTYNIN CHLORIDE [Concomitant]
  5. DRUG, UNSPECIFIED (DRUG, UNSPECIFIED) [Concomitant]

REACTIONS (4)
  - ATRIAL FIBRILLATION [None]
  - CARCINOID SYNDROME [None]
  - CONDITION AGGRAVATED [None]
  - DIARRHOEA [None]
